FAERS Safety Report 8513946-X (Version None)
Quarter: 2012Q3

REPORT INFORMATION
  Report Type: 
  Country: None (occurrence: None)
  Receive Date: 20120717
  Receipt Date: 20120713
  Transmission Date: 20120928
  Serious: Yes (Death, Life-Threatening)
  Sender: FDA-Public Use
  Company Number: DK-B.I. PHARMACEUTICALS,INC./RIDGEFIELD-2012-SW-00373DB

PATIENT
  Sex: Female
  Weight: 50 kg

DRUGS (6)
  1. FUROSEMIDE [Concomitant]
     Dates: start: 20120302, end: 20120416
  2. SIMVASTATIN [Concomitant]
     Dates: start: 20111010, end: 20120416
  3. ENALAPRIL MALEATE [Concomitant]
     Dates: start: 20101118, end: 20120416
  4. PRADAXA [Suspect]
     Indication: CARDIAC VALVE PROSTHESIS USER
     Dosage: 220 MG
     Route: 048
     Dates: start: 20120301, end: 20120416
  5. SERTRALINE HYDROCHLORIDE [Concomitant]
     Dates: start: 20120302, end: 20120416
  6. ACETAMINOPHEN [Concomitant]
     Dates: start: 20100103, end: 20120416

REACTIONS (5)
  - NAUSEA [None]
  - DIARRHOEA [None]
  - MELAENA [None]
  - DECREASED APPETITE [None]
  - MALNUTRITION [None]
